FAERS Safety Report 8510455-9 (Version None)
Quarter: 2012Q3

REPORT INFORMATION
  Report Type: 
  Country: None (occurrence: None)
  Receive Date: 20120715
  Receipt Date: 20120220
  Transmission Date: 20120928
  Serious: Yes (Hospitalization, Other)
  Sender: FDA-Public Use
  Company Number: PHHY2012DE006548

PATIENT
  Sex: Female
  Weight: 65 kg

DRUGS (9)
  1. FALITHROM [Concomitant]
     Dosage: 3 MG/DAY
     Route: 048
     Dates: start: 20110709
  2. BISOPROLOL FUMARATE [Concomitant]
     Dosage: 7.5 MG/DAY
     Route: 048
     Dates: start: 20080924
  3. FLECAINIDE ACETATE [Concomitant]
     Dosage: 100 MG/DAY
     Route: 048
     Dates: start: 20110702
  4. RASILEZ HCT [Suspect]
     Indication: HYPERTENSION
     Dosage: 1 DF, QD
     Route: 048
     Dates: start: 20110207
  5. LERCANIDIPINE [Concomitant]
     Dosage: 20 MG/DAY
     Route: 048
     Dates: start: 20110207
  6. THIENOPYRIDIN [Concomitant]
     Dates: start: 20100121, end: 20100709
  7. DIOVAN [Suspect]
     Indication: HYPERTENSION
     Dosage: 1 DF, QD
     Route: 048
     Dates: start: 20100121, end: 20110207
  8. ASPIRIN [Concomitant]
     Dosage: 100 MG/DAY
     Route: 048
     Dates: start: 20080924
  9. SIMVASTATIN [Concomitant]
     Dosage: 40 MG/DAY
     Route: 048
     Dates: start: 20080924

REACTIONS (2)
  - AORTIC ANEURYSM [None]
  - ATRIAL FIBRILLATION [None]
